FAERS Safety Report 7426058-3 (Version None)
Quarter: 2011Q2

REPORT INFORMATION
  Report Type: 
  Country: None (occurrence: None)
  Receive Date: 20110412
  Receipt Date: 20110405
  Transmission Date: 20111010
  Serious: Yes (Death)
  Sender: FDA-Public Use
  Company Number: DSA_45342_2011

PATIENT
  Age: 91 Year
  Sex: Female

DRUGS (1)
  1. XENAZINE [Suspect]
     Indication: DYSKINESIA
     Dosage: (25 MG QD ORAL)
     Route: 048
     Dates: start: 20090311, end: 20110228

REACTIONS (1)
  - DEATH [None]
